FAERS Safety Report 5564745-2 (Version None)
Quarter: 2007Q4

REPORT INFORMATION
  Report Type: 
  Country: None (occurrence: None)
  Receive Date: 20071212
  Receipt Date: 20071201
  Transmission Date: 20080405
  Serious: Yes (Hospitalization, Other)
  Sender: FDA-Public Use
  Company Number: A-CH2007-17903

PATIENT
  Age: 64 Year
  Sex: Male

DRUGS (7)
  1. TRACLEER [Suspect]
     Indication: PULMONARY FIBROSIS
     Dosage: 80.5 MG, ORAL
     Route: 048
     Dates: start: 20070829, end: 20070906
  2. PANTOZOL (PANTOPRAZOLE SODIUM) [Concomitant]
  3. DECORTIN (PREDNISONE) [Concomitant]
  4. ACETYLSALICYLIC ACID SRT [Concomitant]
  5. DYTIDE (BENZTHIAZIDE, TRIAMTERENE) [Concomitant]
  6. SPIRIVA [Concomitant]
  7. SYMBICORT [Concomitant]

REACTIONS (3)
  - COLITIS ISCHAEMIC [None]
  - COLITIS ULCERATIVE [None]
  - HELICOBACTER GASTRITIS [None]
